FAERS Safety Report 24295325 (Version 2)
Quarter: 2025Q1

REPORT INFORMATION
  Report Type: Spontaneous
  Country: US (occurrence: US)
  Receive Date: 20240907
  Receipt Date: 20250311
  Transmission Date: 20250408
  Serious: No
  Sender: GLAXOSMITHKLINE
  Company Number: US-GSK-US2024107845

PATIENT
  Age: 62 Year
  Sex: Male

DRUGS (3)
  1. BENLYSTA [Suspect]
     Active Substance: BELIMUMAB
     Indication: Product used for unknown indication
     Dates: start: 202401
  2. BENLYSTA [Suspect]
     Active Substance: BELIMUMAB
     Dates: start: 20241228, end: 20250128
  3. BENLYSTA [Suspect]
     Active Substance: BELIMUMAB
     Dates: start: 20250304

REACTIONS (1)
  - Product dose omission issue [Unknown]

NARRATIVE: CASE EVENT DATE: 20240101
